FAERS Safety Report 5546360-X (Version None)
Quarter: 2007Q4

REPORT INFORMATION
  Report Type: 
  Country: None (occurrence: None)
  Receive Date: 20071123
  Receipt Date: 20061129
  Transmission Date: 20080405
  Serious: Yes (Disabling, Other)
  Sender: FDA-Public Use
  Company Number: US-JNJFOC-20061101004

PATIENT
  Age: 65 Year
  Sex: Male
  Weight: 65.318 kg

DRUGS (3)
  1. LEVAQUIN [Suspect]
     Indication: PNEUMONIA
     Dosage: 500 MG, IN 1 DAY, ORAL
     Route: 048
     Dates: start: 20060925, end: 20061002
  2. KENOLOG (TRIAMCINOLONE ACETONIDE) UNSPECIFIED [Concomitant]
  3. ADVAIR (SERETIDE MITE) UNSPECIFIED [Concomitant]

REACTIONS (1)
  - TENDON RUPTURE [None]
